FAERS Safety Report 8914708 (Version 3)
Quarter: 2012Q4

REPORT INFORMATION
  Report Type: 
  Country: US (occurrence: US)
  Receive Date: 20121119
  Receipt Date: 20121211
  Transmission Date: 20130627
  Serious: Yes (Death)
  Sender: FDA-Public Use
  Company Number: US-009507513-1211USA006668

PATIENT
  Sex: Male

DRUGS (3)
  1. RIBAVIRIN [Suspect]
     Dosage: UNK
     Dates: start: 20120807
  2. TELAPREVIR [Suspect]
     Dosage: UNK
     Dates: start: 20120807
  3. PEGASYS [Suspect]
     Dosage: UNK
     Dates: start: 20120807

REACTIONS (2)
  - Death [Fatal]
  - Pain [Unknown]
